FAERS Safety Report 25313509 (Version 8)
Quarter: 2025Q4

REPORT INFORMATION
  Report Type: Report from Study
  Country: US (occurrence: US)
  Receive Date: 20250514
  Receipt Date: 20251217
  Transmission Date: 20260117
  Serious: Yes (Other)
  Sender: ABBVIE
  Company Number: US-ABBVIE-6279137

PATIENT
  Age: 45 Year
  Sex: Female

DRUGS (3)
  1. RINVOQ [Suspect]
     Active Substance: UPADACITINIB
     Indication: Crohn^s disease
     Route: 048
  2. RINVOQ [Suspect]
     Active Substance: UPADACITINIB
     Indication: Crohn^s disease
     Dosage: FROM STRENGTH 30 MILLGRAM
     Route: 048
     Dates: start: 20231031
  3. RINVOQ [Suspect]
     Active Substance: UPADACITINIB
     Indication: Crohn^s disease
     Route: 048

REACTIONS (22)
  - Fistula [Not Recovered/Not Resolved]
  - Ileostomy [Recovering/Resolving]
  - Autoimmune pancreatitis [Unknown]
  - Post procedural complication [Recovering/Resolving]
  - Gastrointestinal pain [Unknown]
  - Gastrointestinal wall thickening [Unknown]
  - Stomatitis [Unknown]
  - Abdominal discomfort [Unknown]
  - Dyspepsia [Not Recovered/Not Resolved]
  - Surgical failure [Unknown]
  - Malabsorption [Not Recovered/Not Resolved]
  - Crohn^s disease [Recovering/Resolving]
  - Eczema [Unknown]
  - Large intestine perforation [Unknown]
  - Rash macular [Unknown]
  - Wrong technique in product usage process [Not Recovered/Not Resolved]
  - Gastrointestinal tract mucosal discolouration [Unknown]
  - Blood zinc decreased [Unknown]
  - Protein total decreased [Unknown]
  - Pancreatic disorder [Unknown]
  - Rheumatoid arthritis [Unknown]
  - Incorrect dose administered [Unknown]

NARRATIVE: CASE EVENT DATE: 20250101
